FAERS Safety Report 8621373 (Version 9)
Quarter: 2013Q4

REPORT INFORMATION
  Report Type: Report from Study
  Country: US (occurrence: US)
  Receive Date: 20120619
  Receipt Date: 20131022
  Transmission Date: 20140711
  Serious: Yes (Other)
  Sender: FDA-Public Use
  Company Number: US-TEVA-343090USA

PATIENT
  Age: 18 Year
  Sex: Female
  Weight: 65.74 kg

DRUGS (4)
  1. CLARAVIS [Suspect]
     Dosage: 80 MILLIGRAM DAILY;
     Route: 048
     Dates: start: 20120229, end: 201206
  2. PRENATAL VITAMINS [Concomitant]
     Route: 048
     Dates: start: 20120619
  3. PYRIDOXINE [Concomitant]
     Dosage: 150 MILLIGRAM DAILY; 1/2 TABLET
     Route: 048
     Dates: start: 20120720
  4. HYDROXYZINE HYDROCHLORIDE [Concomitant]
     Indication: INSOMNIA
     Dosage: HS
     Route: 048
     Dates: start: 20130207

REACTIONS (1)
  - Unintended pregnancy [Recovered/Resolved]
